FAERS Safety Report 7047613-9 (Version None)
Quarter: 2010Q4

REPORT INFORMATION
  Report Type: 
  Country: None (occurrence: None)
  Receive Date: 20101015
  Receipt Date: 20101007
  Transmission Date: 20110411
  Serious: Yes (Other)
  Sender: FDA-Public Use
  Company Number: JP-BRISTOL-MYERS SQUIBB COMPANY-15333925

PATIENT

DRUGS (1)
  1. ABILIFY [Suspect]
     Route: 064

REACTIONS (1)
  - FOETAL GROWTH RESTRICTION [None]
